FAERS Safety Report 9973109 (Version 1)
Quarter: 2014Q1

REPORT INFORMATION
  Report Type: Spontaneous
  Country: DE (occurrence: DE)
  Receive Date: 20140306
  Receipt Date: 20140306
  Transmission Date: 20141002
  Serious: Yes (Other)
  Sender: FDA-Public Use
  Company Number: DE-BRISTOL-MYERS SQUIBB COMPANY-20330650

PATIENT
  Age: 67 Year
  Sex: Male
  Weight: 72 kg

DRUGS (1)
  1. ELIQUIS [Suspect]
     Indication: ARRHYTHMIA
     Route: 048
     Dates: start: 20140129

REACTIONS (2)
  - Atrial fibrillation [Unknown]
  - Dizziness [Unknown]
